FAERS Safety Report 9522334 (Version 2)
Quarter: 2014Q2

REPORT INFORMATION
  Report Type: Report from Study
  Country: US (occurrence: US)
  Receive Date: 20130913
  Receipt Date: 20140408
  Transmission Date: 20141212
  Serious: Yes (Hospitalization, Other)
  Sender: FDA-Public Use
  Company Number: US-JNJFOC-20130902913

PATIENT
  Sex: Female
  Weight: 81.65 kg

DRUGS (7)
  1. REMICADE [Suspect]
     Indication: CROHN^S DISEASE
     Dosage: EVERY 12 OR 13 WEEKS
     Route: 042
  2. REMICADE [Suspect]
     Indication: CROHN^S DISEASE
     Route: 042
  3. REMICADE [Suspect]
     Indication: CROHN^S DISEASE
     Route: 042
  4. REMICADE [Suspect]
     Indication: CROHN^S DISEASE
     Route: 042
  5. REMICADE [Suspect]
     Indication: CROHN^S DISEASE
     Dosage: EVERY 12 OR 13 WEEKS
     Route: 042
     Dates: start: 2013, end: 2013
  6. REMICADE [Suspect]
     Indication: CROHN^S DISEASE
     Route: 042
     Dates: start: 2010, end: 2013
  7. ASPIRIN [Concomitant]
     Route: 065

REACTIONS (8)
  - Staphylococcal infection [Not Recovered/Not Resolved]
  - Crohn^s disease [Unknown]
  - Fungal infection [Not Recovered/Not Resolved]
  - Influenza [Unknown]
  - Constipation [Not Recovered/Not Resolved]
  - Rash [Not Recovered/Not Resolved]
  - Urticaria [Not Recovered/Not Resolved]
  - Alopecia [Not Recovered/Not Resolved]
